FAERS Safety Report 6170610-2 (Version None)
Quarter: 2009Q2

REPORT INFORMATION
  Report Type: 
  Country: None (occurrence: None)
  Receive Date: 20090428
  Receipt Date: 20090420
  Transmission Date: 20091009
  Serious: Yes (Hospitalization, Other)
  Sender: FDA-Public Use
  Company Number: US-ELI_LILLY_AND_COMPANY-US200904004318

PATIENT
  Sex: Female

DRUGS (3)
  1. FORTEO [Suspect]
     Dates: end: 20090201
  2. FORTEO [Suspect]
     Dosage: UNK, UNK
     Dates: start: 20090101, end: 20090101
  3. FORTEO [Suspect]
     Dates: start: 20090101

REACTIONS (6)
  - ABDOMINAL PAIN UPPER [None]
  - ASTHENIA [None]
  - INFLUENZA [None]
  - PNEUMONIA [None]
  - PRURITUS GENERALISED [None]
  - TRANSFUSION [None]
